FAERS Safety Report 10255149 (Version 2)
Quarter: 2014Q2

REPORT INFORMATION
  Report Type: Spontaneous
  Country: US (occurrence: US)
  Receive Date: 20140624
  Receipt Date: 20140625
  Transmission Date: 20141212
  Serious: No
  Sender: FDA-Public Use
  Company Number: US-PFIZER INC-2014170456

PATIENT
  Sex: Female

DRUGS (1)
  1. SERTRALINE HCL [Suspect]
     Dosage: 100 MG, UNK
     Dates: start: 2014

REACTIONS (10)
  - Premenstrual dysphoric disorder [Unknown]
  - Hypervigilance [Unknown]
  - Stress [Unknown]
  - Crying [Unknown]
  - Lethargy [Unknown]
  - Muscle spasms [Unknown]
  - Pruritus [Unknown]
  - Depressed mood [Unknown]
  - Fear [Unknown]
  - Feeling of despair [Unknown]
